FAERS Safety Report 21408590 (Version 2)
Quarter: 2022Q4

REPORT INFORMATION
  Report Type: Report from Study
  Country: CA (occurrence: CA)
  Receive Date: 20221004
  Receipt Date: 20221109
  Transmission Date: 20230113
  Serious: Yes (Death, Other)
  Sender: FDA-Public Use
  Company Number: CA-BRISTOL-MYERS SQUIBB COMPANY-2022-115694

PATIENT
  Age: 63 Year
  Sex: Male
  Weight: 63.5 kg

DRUGS (6)
  1. OPDIVO [Suspect]
     Active Substance: NIVOLUMAB
     Indication: Oesophageal carcinoma
     Route: 042
     Dates: start: 20220421
  2. OPDIVO [Suspect]
     Active Substance: NIVOLUMAB
     Route: 065
  3. OPDIVO [Suspect]
     Active Substance: NIVOLUMAB
     Route: 042
  4. OPDIVO [Suspect]
     Active Substance: NIVOLUMAB
     Dosage: Q4WEEKS
     Route: 042
     Dates: start: 20220421
  5. AMLODIPINE [Concomitant]
     Active Substance: AMLODIPINE BESYLATE
     Indication: Blood pressure abnormal
     Route: 065
  6. VENTOLIN [Concomitant]
     Active Substance: ALBUTEROL SULFATE
     Indication: Asthma
     Route: 065

REACTIONS (2)
  - Oesophageal cancer metastatic [Fatal]
  - Empyema [Fatal]
